FAERS Safety Report 21178804 (Version 3)
Quarter: 2022Q3

REPORT INFORMATION
  Report Type: Spontaneous
  Country: CZ (occurrence: CZ)
  Receive Date: 20220805
  Receipt Date: 20220923
  Transmission Date: 20221027
  Serious: Yes (Hospitalization, Other)
  Sender: FDA-Public Use
  Company Number: CZ-MYLANLABS-2022M1083530

PATIENT
  Age: 24 Year
  Sex: Male

DRUGS (12)
  1. CLOZAPINE [Suspect]
     Active Substance: CLOZAPINE
     Indication: Psychotic disorder
     Dosage: 100 MILLIGRAM (IRREGULARLY, OMMISION OF MEDICATION)
     Route: 065
  2. CLOZAPINE [Suspect]
     Active Substance: CLOZAPINE
     Indication: Schizophrenia
     Dosage: 100 MILLIGRAM (2 TABLETS IN THE MORNING , 3 TABLETS IN THE EVENING)
     Route: 065
  3. CLOZAPINE [Suspect]
     Active Substance: CLOZAPINE
     Dosage: 500 MILLIGRAM, QD
     Route: 065
  4. CLOZAPINE [Suspect]
     Active Substance: CLOZAPINE
     Dosage: 5 DOSAGE FORM, QD (2-0-3)
     Route: 048
  5. LITHIUM [Concomitant]
     Active Substance: LITHIUM
     Indication: Psychotic disorder
     Dosage: 300 MILLIGRAM, 300 MG (1-0-2)
     Route: 065
  6. LITHIUM [Concomitant]
     Active Substance: LITHIUM
     Indication: Schizophrenia
     Dosage: 900 MILLIGRAM, QD
     Route: 048
  7. LITHIUM [Concomitant]
     Active Substance: LITHIUM
     Dosage: 3 DOSAGE FORM, QD (1-0-2)
     Route: 065
  8. PROMETHAZINE [Concomitant]
     Active Substance: PROMETHAZINE HYDROCHLORIDE
     Indication: Psychotic disorder
     Dosage: 25 MILLIGRAM, 25 MG (1-0-1)
     Route: 065
  9. PROMETHAZINE [Concomitant]
     Active Substance: PROMETHAZINE HYDROCHLORIDE
     Indication: Schizophrenia
     Dosage: 50 MILLIGRAM, QD
     Route: 048
  10. LURASIDONE [Concomitant]
     Active Substance: LURASIDONE
     Indication: Psychotic disorder
     Dosage: 74 MILLIGRAM, 74 MG (0-0-1)
     Route: 048
  11. LURASIDONE [Concomitant]
     Active Substance: LURASIDONE
     Indication: Schizophrenia
     Dosage: 1 DOSAGE FORM, QD (0-0-1)
     Route: 048
  12. ESCITALOPRAM [Concomitant]
     Active Substance: ESCITALOPRAM OXALATE
     Dosage: 1 DOSAGE FORM, QD (1-0-0)
     Route: 048

REACTIONS (15)
  - Schizophrenia [Unknown]
  - Aggression [Unknown]
  - Mental disorder [Unknown]
  - Mental impairment [Unknown]
  - Condition aggravated [Unknown]
  - Poisoning [Recovered/Resolved]
  - Psychotic disorder [Unknown]
  - COVID-19 [Unknown]
  - Intentional product misuse [Recovered/Resolved]
  - Antipsychotic drug level increased [Unknown]
  - Asthenia [Unknown]
  - Product dose omission issue [Unknown]
  - Product use in unapproved indication [Unknown]
  - Body temperature increased [Unknown]
  - Dizziness [Recovered/Resolved]
